FAERS Safety Report 21749891 (Version 1)
Quarter: 2022Q4

REPORT INFORMATION
  Report Type: Spontaneous
  Country: US (occurrence: None)
  Receive Date: 20221219
  Receipt Date: 20221219
  Transmission Date: 20230113
  Serious: No
  Sender: FDA-Public Use
  Company Number: None

PATIENT
  Age: 60 Year
  Sex: Male
  Weight: 73.8 kg

DRUGS (2)
  1. XHANCE [Suspect]
     Active Substance: FLUTICASONE PROPIONATE
     Indication: Nasal congestion
     Dates: start: 20221024, end: 20221028
  2. VITAMINS [Concomitant]
     Active Substance: VITAMINS

REACTIONS (1)
  - Abnormal dreams [None]

NARRATIVE: CASE EVENT DATE: 20221024
